FAERS Safety Report 6741924-X (Version None)
Quarter: 2010Q2

REPORT INFORMATION
  Report Type: 
  Country: None (occurrence: None)
  Receive Date: 20100526
  Receipt Date: 20100517
  Transmission Date: 20101027
  Serious: Yes (Hospitalization)
  Sender: FDA-Public Use
  Company Number: B0599711A

PATIENT
  Sex: Female

DRUGS (3)
  1. ARIXTRA [Suspect]
     Indication: CEREBRAL VENOUS THROMBOSIS
     Dosage: 7.5MG PER DAY
     Route: 058
     Dates: start: 20090801, end: 20100301
  2. LOVENOX [Concomitant]
     Indication: CEREBRAL VENOUS THROMBOSIS
     Route: 065
     Dates: start: 20090101, end: 20090101
  3. INNOHEP [Concomitant]
     Indication: CEREBRAL VENOUS THROMBOSIS
     Route: 065
     Dates: start: 20090101, end: 20090801

REACTIONS (18)
  - ABDOMINAL PAIN UPPER [None]
  - CELL DEATH [None]
  - DIARRHOEA [None]
  - DISSEMINATED INTRAVASCULAR COAGULATION [None]
  - DRUG EXPOSURE DURING PREGNANCY [None]
  - ECCHYMOSIS [None]
  - HAEMOLYSIS [None]
  - HELLP SYNDROME [None]
  - HEPATOCELLULAR INJURY [None]
  - HEPATOMEGALY [None]
  - HYPERTENSION [None]
  - MALAISE [None]
  - NAUSEA [None]
  - PLATELET DISORDER [None]
  - PURPURA [None]
  - RENAL FAILURE ACUTE [None]
  - THROMBOCYTOPENIA [None]
  - VOMITING [None]
